FAERS Safety Report 5989686-8 (Version None)
Quarter: 2008Q4

REPORT INFORMATION
  Report Type: 
  Country: None (occurrence: None)
  Receive Date: 20081210
  Receipt Date: 20081203
  Transmission Date: 20090506
  Serious: Yes (Death, Other)
  Sender: FDA-Public Use
  Company Number: US-ROXANE LABORATORIES, INC.-2008-RO-00336RO

PATIENT
  Age: 61 Year
  Sex: Male

DRUGS (11)
  1. MYCOPHENOLATE MOFETIL [Suspect]
     Indication: IMMUNOSUPPRESSANT DRUG THERAPY
  2. PREDNISONE TAB [Suspect]
     Indication: IMMUNOSUPPRESSANT DRUG THERAPY
  3. TACROLIMUS [Suspect]
     Indication: IMMUNOSUPPRESSANT DRUG THERAPY
  4. MICAFUNGIN [Suspect]
     Indication: ANTIFUNGAL PROPHYLAXIS
     Dosage: 100MG
     Route: 042
  5. TRIMETHOPRIM + SULFAMETHOXAZOLE [Suspect]
     Indication: ANTIFUNGAL PROPHYLAXIS
  6. DAPTOMYCIN [Suspect]
     Indication: ENTEROCOCCAL INFECTION
  7. GANCICLOVIR [Suspect]
     Indication: CYTOMEGALOVIRUS INFECTION
  8. MEROPENEM [Suspect]
     Indication: ESCHERICHIA BACTERAEMIA
  9. CEFEPIME [Suspect]
     Indication: BACTERAEMIA
  10. VASOPRESSORS [Suspect]
     Indication: SEPTIC SHOCK
  11. AMPHOTERICIN B [Suspect]

REACTIONS (6)
  - CYTOMEGALOVIRUS VIRAEMIA [None]
  - ENTEROCOCCAL INFECTION [None]
  - ESCHERICHIA BACTERAEMIA [None]
  - FUNGAL INFECTION [None]
  - MULTI-ORGAN FAILURE [None]
  - SEPTIC SHOCK [None]
